FAERS Safety Report 18799771 (Version 2)
Quarter: 2021Q1

REPORT INFORMATION
  Report Type: Spontaneous
  Country: AU (occurrence: AU)
  Receive Date: 20210128
  Receipt Date: 20210216
  Transmission Date: 20210419
  Serious: Yes (Hospitalization, Other)
  Sender: FDA-Public Use
  Company Number: AU-INDIVIOR US-INDV-128055-2021

PATIENT

DRUGS (2)
  1. SUBOXONE [Suspect]
     Active Substance: BUPRENORPHINE HYDROCHLORIDE\NALOXONE HYDROCHLORIDE
     Dosage: 4 MILLIGRAM, TID (OFF THE STREET)
     Route: 051
  2. SUBOXONE [Suspect]
     Active Substance: BUPRENORPHINE HYDROCHLORIDE\NALOXONE HYDROCHLORIDE
     Indication: PRODUCT USED FOR UNKNOWN INDICATION
     Dosage: UNK (PRESCRIBED)
     Route: 065

REACTIONS (6)
  - Intentional product use issue [Not Recovered/Not Resolved]
  - Substance abuse [Not Recovered/Not Resolved]
  - Hepatic function abnormal [Unknown]
  - Drug dependence [Not Recovered/Not Resolved]
  - Suicide threat [Unknown]
  - Renal impairment [Unknown]
